FAERS Safety Report 5826827-7 (Version None)
Quarter: 2008Q3

REPORT INFORMATION
  Report Type: 
  Country: None (occurrence: None)
  Receive Date: 20080730
  Receipt Date: 20080724
  Transmission Date: 20090109
  Serious: Yes (Death, Hospitalization, Other)
  Sender: FDA-Public Use
  Company Number: PHHO2008DE05724

PATIENT
  Sex: Female

DRUGS (14)
  1. TASIGNA [Suspect]
     Indication: CHRONIC MYELOID LEUKAEMIA
     Dosage: 200 MG, BID
     Route: 048
     Dates: start: 20061206, end: 20070905
  2. TASIGNA [Suspect]
     Dosage: NO TREATMENT
     Dates: start: 20070906, end: 20070915
  3. TASIGNA [Suspect]
     Dosage: 400 MG, QD
     Route: 048
     Dates: start: 20070916, end: 20071111
  4. RESTEX [Suspect]
     Indication: RESTLESS LEGS SYNDROME
  5. BETAHISTINE [Suspect]
     Indication: DIZZINESS
  6. DIGITALIS TAB [Concomitant]
  7. MALTON E [Concomitant]
     Indication: PROPHYLAXIS
  8. LEVOTHYROXINE SODIUM [Concomitant]
     Indication: HYPOTHYROIDISM
  9. MUSARIL [Concomitant]
     Indication: PAIN
  10. BUSCOPAN [Concomitant]
     Indication: PAIN
  11. PANTOPRAZOLE SODIUM [Concomitant]
     Indication: PAIN
  12. BELOC-ZOK [Concomitant]
  13. BUPIVACAINE [Concomitant]
  14. LYRICA [Concomitant]

REACTIONS (14)
  - ANGINA PECTORIS [None]
  - ASTHENIA [None]
  - ATRIAL FIBRILLATION [None]
  - BLAST CRISIS IN MYELOGENOUS LEUKAEMIA [None]
  - BRADYCARDIA [None]
  - CHEST DISCOMFORT [None]
  - CHRONIC MYELOID LEUKAEMIA [None]
  - DIARRHOEA [None]
  - DIZZINESS [None]
  - ELECTROCARDIOGRAM ST SEGMENT DEPRESSION [None]
  - FATIGUE [None]
  - MULTI-ORGAN FAILURE [None]
  - TACHYARRHYTHMIA [None]
  - VENTRICULAR TACHYCARDIA [None]
